FAERS Safety Report 5179377-8 (Version None)
Quarter: 2006Q4

REPORT INFORMATION
  Report Type: 
  Country: None (occurrence: None)
  Receive Date: 20061219
  Receipt Date: 20060712
  Transmission Date: 20070319
  Serious: Yes (Hospitalization)
  Sender: FDA-Public Use
  Company Number: US-ROCHE-455330

PATIENT
  Age: 27 Year
  Sex: Female
  Weight: 59 kg

DRUGS (8)
  1. ACCUTANE [Suspect]
     Route: 048
     Dates: start: 19980615, end: 19990615
  2. ACCUTANE [Suspect]
     Route: 048
     Dates: start: 20001115, end: 20010315
  3. ACCUTANE [Suspect]
     Route: 048
     Dates: start: 20010415, end: 20010615
  4. ORTHO TRI-CYCLEN [Concomitant]
     Dosage: TAKEN AT TIME OF ISOTRETINOIN USE
  5. IRON [Concomitant]
     Indication: IRON DEFICIENCY ANAEMIA
     Route: 048
     Dates: start: 19981113
  6. ALDACTONE [Concomitant]
     Dates: start: 19981006
  7. BENTYL [Concomitant]
     Route: 048
  8. ZINC [Concomitant]
     Dates: start: 19990615

REACTIONS (9)
  - CROHN'S DISEASE [None]
  - DERMATITIS [None]
  - GASTROINTESTINAL INJURY [None]
  - INFLAMMATORY BOWEL DISEASE [None]
  - INJURY [None]
  - INTESTINAL HAEMORRHAGE [None]
  - IRRITABLE BOWEL SYNDROME [None]
  - RECTAL HAEMORRHAGE [None]
  - SMALL INTESTINAL OBSTRUCTION [None]
